FAERS Safety Report 19032018 (Version 3)
Quarter: 2021Q2

REPORT INFORMATION
  Report Type: Report from Study
  Country: US (occurrence: US)
  Receive Date: 20210319
  Receipt Date: 20210511
  Transmission Date: 20210717
  Serious: Yes (Hospitalization, Other)
  Sender: FDA-Public Use
  Company Number: US-OTSUKA-2020_031894AA

PATIENT
  Age: 84 Year
  Sex: Male
  Weight: 83.9 kg

DRUGS (1)
  1. ASTX727 [Suspect]
     Active Substance: CEDAZURIDINE\DECITABINE
     Indication: MYELODYSPLASTIC SYNDROME
     Dosage: 135MG (35 MG DECITABINE AND 100 MG CEDAZURIDINE), QD 1?5 DAYS EVERY 28 DAY CYCLE
     Route: 048
     Dates: start: 20200925, end: 20210405

REACTIONS (6)
  - Platelet count decreased [Unknown]
  - Drug ineffective [Unknown]
  - Toxicity to various agents [Unknown]
  - Haemoglobin decreased [Unknown]
  - Red blood cell count decreased [Unknown]
  - White blood cell count decreased [Unknown]

NARRATIVE: CASE EVENT DATE: 20201209
